FAERS Safety Report 6464556-X (Version None)
Quarter: 2009Q4

REPORT INFORMATION
  Report Type: 
  Country: None (occurrence: None)
  Receive Date: 20091201
  Receipt Date: 20091120
  Transmission Date: 20100525
  Serious: Yes (Hospitalization)
  Sender: FDA-Public Use
  Company Number: US-PFIZER INC-2009300418

PATIENT
  Age: 59 Year
  Sex: Male
  Weight: 98.5 kg

DRUGS (1)
  1. SUNITINIB MALATE [Suspect]
     Indication: RENAL CELL CARCINOMA
     Dosage: 50 MG, 1X/DAY,WEEKS1,2,4 AND 5
     Route: 048
     Dates: start: 20080912, end: 20091025

REACTIONS (1)
  - CEREBRAL ISCHAEMIA [None]
